FAERS Safety Report 6983792-7 (Version None)
Quarter: 2010Q3

REPORT INFORMATION
  Report Type: 
  Country: None (occurrence: None)
  Receive Date: 20100914
  Receipt Date: 20090713
  Transmission Date: 20110219
  Serious: No
  Sender: FDA-Public Use
  Company Number: US-WYE-H07963609

PATIENT
  Age: 50 Year
  Sex: Male
  Weight: 74.91 kg

DRUGS (1)
  1. PRISTIQ [Suspect]
     Indication: DEPRESSION
     Route: 048
     Dates: start: 20081023

REACTIONS (3)
  - DRUG WITHDRAWAL SYNDROME [None]
  - PANIC REACTION [None]
  - PARAESTHESIA [None]
